FAERS Safety Report 21379122 (Version 2)
Quarter: 2022Q4

REPORT INFORMATION
  Report Type: Spontaneous
  Country: US (occurrence: US)
  Receive Date: 20220927
  Receipt Date: 20221123
  Transmission Date: 20230113
  Serious: Yes (Other)
  Sender: FDA-Public Use
  Company Number: US-SA-SAC20220923001399

PATIENT
  Age: 86 Year
  Sex: Female

DRUGS (1)
  1. DUPIXENT [Suspect]
     Active Substance: DUPILUMAB
     Dosage: 300 MG, OTHER
     Route: 058
     Dates: start: 20220515

REACTIONS (7)
  - Retinal detachment [Unknown]
  - Chest discomfort [Unknown]
  - Dyspnoea [Unknown]
  - Scar [Unknown]
  - Nervousness [Unknown]
  - Asthma [Recovering/Resolving]
  - Arthralgia [Unknown]
